FAERS Safety Report 8595783 (Version 3)
Quarter: 2013Q3

REPORT INFORMATION
  Report Type: Spontaneous
  Country: US (occurrence: US)
  Receive Date: 20120605
  Receipt Date: 20130911
  Transmission Date: 20140515
  Serious: Yes (Disabling)
  Sender: FDA-Public Use
  Company Number: US-ASTRAZENECA-2012SE35637

PATIENT
  Age: 30 Year
  Sex: Male
  Weight: 149.7 kg

DRUGS (11)
  1. NEXIUM [Suspect]
     Indication: GASTROOESOPHAGEAL REFLUX DISEASE
     Dosage: TWO TIME PER DAY
     Route: 048
     Dates: start: 2006, end: 2013
  2. NEXIUM [Suspect]
     Indication: GASTROOESOPHAGEAL REFLUX DISEASE
     Route: 048
     Dates: start: 20110103
  3. PRILOSEC [Suspect]
     Route: 048
  4. PROMETHAZINE [Concomitant]
     Route: 048
     Dates: start: 20110103
  5. THEOPHYLLINE [Concomitant]
     Route: 048
     Dates: start: 20110103
  6. CARISOPRODOL [Concomitant]
     Route: 048
     Dates: start: 20110103
  7. MECLIZINE [Concomitant]
     Route: 048
     Dates: start: 20110103
  8. TAMSULOSIN HCL [Concomitant]
     Route: 048
     Dates: start: 20110103
  9. SERTRALINE [Concomitant]
     Route: 048
     Dates: start: 20110103
  10. FLUTICASONE PROP [Concomitant]
     Dates: start: 20110103
  11. PREDNISONE [Concomitant]
     Route: 048
     Dates: start: 20110715

REACTIONS (9)
  - Spinal fracture [Unknown]
  - Osteoporosis [Unknown]
  - Multiple fractures [Unknown]
  - Mental disability [Unknown]
  - Limb discomfort [Unknown]
  - Foot fracture [Unknown]
  - Arthritis [Unknown]
  - Androgen deficiency [Unknown]
  - Depression [Unknown]
